FAERS Safety Report 9736370 (Version 3)
Quarter: 2014Q1

REPORT INFORMATION
  Report Type: Report from Study
  Country: CA (occurrence: CA)
  Receive Date: 20131206
  Receipt Date: 20140118
  Transmission Date: 20141002
  Serious: Yes (Other)
  Sender: FDA-Public Use
  Company Number: CA-ROCHE-1222173

PATIENT
  Age: 49 Year
  Sex: Female
  Weight: 55.3 kg

DRUGS (12)
  1. RITUXAN [Suspect]
     Indication: RHEUMATOID ARTHRITIS
     Dosage: DAY 1 AND 15
     Route: 042
     Dates: start: 20130417
  2. DIPHENHYDRAMINE HCL [Concomitant]
     Route: 048
     Dates: start: 20130417
  3. ACETAMINOPHEN [Concomitant]
     Route: 048
     Dates: start: 20130417
  4. METHYLPREDNISOLONE [Concomitant]
     Route: 042
     Dates: start: 20130417
  5. MOBICOX [Concomitant]
  6. PREDNISONE [Concomitant]
  7. SYNTHROID [Concomitant]
  8. RISEDRONATE [Concomitant]
  9. SULFASALAZINE [Concomitant]
  10. HYDROXYCHLOROQUINE [Concomitant]
  11. OXYCOCET [Concomitant]
  12. MORPHINE SR [Concomitant]

REACTIONS (4)
  - Tendon rupture [Unknown]
  - Dyspepsia [Recovered/Resolved]
  - Rheumatoid arthritis [Unknown]
  - Blood pressure increased [Unknown]
